FAERS Safety Report 9465106 (Version 2)
Quarter: 2013Q3

REPORT INFORMATION
  Report Type: Report from Study
  Country: CA (occurrence: CA)
  Receive Date: 20130819
  Receipt Date: 20130819
  Transmission Date: 20140515
  Serious: Yes (Hospitalization, Other)
  Sender: FDA-Public Use
  Company Number: CA-ROCHE-1253878

PATIENT
  Age: 72 Year
  Sex: Male
  Weight: 65.8 kg

DRUGS (28)
  1. RITUXAN [Suspect]
     Indication: RHEUMATOID ARTHRITIS
     Route: 042
     Dates: start: 2007
  2. RITUXAN [Suspect]
     Dosage: MOST RECENT DOSE RECEIVED ON 21/FEB/2012
     Route: 042
     Dates: start: 20110810
  3. PREDNISONE [Suspect]
     Indication: PRODUCT USED FOR UNKNOWN INDICATION
     Route: 065
  4. PANTOPRAZOLE [Concomitant]
     Route: 065
  5. CIPROFLOXACIN [Concomitant]
     Route: 065
  6. HYDROXYCHLOROQUINE [Concomitant]
     Route: 065
  7. TAMSULOSIN [Concomitant]
     Route: 065
  8. SULFASALAZINE [Concomitant]
     Route: 065
  9. LANTUS [Concomitant]
     Dosage: TAKEN AT NIGHT
     Route: 065
  10. METFORMIN [Concomitant]
     Dosage: 500MG + 850MG
     Route: 065
  11. BISACODYL [Concomitant]
     Route: 054
  12. SENNOSIDES [Concomitant]
     Dosage: 12-24 MG
     Route: 065
  13. MONTELUKAST [Concomitant]
     Route: 065
  14. ALENDRONATE [Concomitant]
     Route: 065
  15. DEXAMETHASONE [Concomitant]
  16. TETRACYCLINE [Concomitant]
  17. NYSTATIN [Concomitant]
     Route: 065
  18. HYDROMORPHONE [Concomitant]
     Route: 065
  19. TYLENOL #3 (CANADA) [Concomitant]
  20. ACETAMINOPHEN [Concomitant]
     Dosage: 325-650
     Route: 065
  21. SALBUTAMOL [Concomitant]
     Dosage: 2 PUFFS
     Route: 065
  22. ATORVASTATIN [Concomitant]
     Route: 065
  23. ATENOLOL [Concomitant]
     Route: 065
  24. AMLODIPINE [Concomitant]
     Route: 065
  25. ACETYLSALICYLIC ACID [Concomitant]
     Route: 065
  26. MORPHINE [Concomitant]
     Dosage: 5-10 MG
     Route: 065
  27. ADVAIR DISKUS [Concomitant]
     Dosage: 1 PUFF
     Route: 065
  28. SPIRIVA [Concomitant]
     Route: 065

REACTIONS (3)
  - Pneumonia [Unknown]
  - Rheumatoid arthritis [Not Recovered/Not Resolved]
  - Immunodeficiency [Unknown]
